FAERS Safety Report 8488070-5 (Version None)
Quarter: 2012Q3

REPORT INFORMATION
  Report Type: 
  Country: None (occurrence: None)
  Receive Date: 20120705
  Receipt Date: 20120629
  Transmission Date: 20120928
  Serious: Yes (Hospitalization, Other)
  Sender: FDA-Public Use
  Company Number: US-PFIZER INC-2012157010

PATIENT
  Age: 75 Year
  Sex: Female
  Weight: 85.714 kg

DRUGS (6)
  1. LYRICA [Suspect]
     Dosage: TWO CAPSULES OF 25 MG,DAILY
     Route: 048
     Dates: start: 20120101
  2. LYRICA [Suspect]
     Dosage: 25 MG, DAILY
     Route: 048
     Dates: start: 20120101
  3. LYRICA [Suspect]
     Dosage: 50 MG, DAILY
     Route: 048
     Dates: start: 20120101
  4. CHLORPHENIRAMINE MALEATE [Suspect]
     Indication: PRURITUS
     Dosage: UNK
     Route: 048
     Dates: start: 20120101
  5. LYRICA [Suspect]
     Dosage: UNK, DAILY
     Route: 048
  6. LYRICA [Suspect]
     Indication: CONVULSION
     Dosage: 50 MG, DAILY
     Route: 048
     Dates: start: 20120401

REACTIONS (6)
  - DRUG INTOLERANCE [None]
  - PRURITUS [None]
  - URTICARIA [None]
  - DRUG INEFFECTIVE [None]
  - RASH [None]
  - DIABETES MELLITUS [None]
